FAERS Safety Report 7557565-0 (Version None)
Quarter: 2011Q2

REPORT INFORMATION
  Report Type: 
  Country: None (occurrence: None)
  Receive Date: 20110620
  Receipt Date: 20110608
  Transmission Date: 20111010
  Serious: Yes (Life-Threatening, Other)
  Sender: FDA-Public Use
  Company Number: JP-AMGEN-JPNCT2011031186

PATIENT
  Age: 56 Year
  Sex: Male
  Weight: 69 kg

DRUGS (7)
  1. DEXAMETHASONE SODIUM PHOSPHATE [Concomitant]
     Indication: PREMEDICATION
     Dosage: UNK UNK, QD
     Route: 041
     Dates: start: 20110523, end: 20110523
  2. FLUOROURACIL [Suspect]
     Route: 041
     Dates: start: 20110523, end: 20110525
  3. LEUCOVORIN CALCIUM [Concomitant]
     Indication: COLORECTAL CANCER
     Route: 041
     Dates: start: 20110523, end: 20110523
  4. PANITUMUMAB [Suspect]
     Indication: COLORECTAL CANCER
     Dosage: 400 MG, Q2WK
     Route: 042
     Dates: start: 20110523, end: 20110523
  5. OXALIPLATIN [Concomitant]
     Indication: COLORECTAL CANCER
     Route: 041
     Dates: start: 20110523, end: 20110523
  6. ALOXI [Concomitant]
     Indication: PREMEDICATION
     Route: 041
     Dates: start: 20110523, end: 20110523
  7. FLUOROURACIL [Suspect]
     Indication: COLORECTAL CANCER
     Route: 040
     Dates: start: 20110523, end: 20110523

REACTIONS (3)
  - VOMITING [None]
  - HYPERAMMONAEMIA [None]
  - CONVULSION [None]
